FAERS Safety Report 21149473 (Version 2)
Quarter: 2022Q3

REPORT INFORMATION
  Report Type: Spontaneous
  Country: IR (occurrence: IR)
  Receive Date: 20220729
  Receipt Date: 20220808
  Transmission Date: 20221027
  Serious: Yes (Life-Threatening, Hospitalization, Other)
  Sender: FDA-Public Use
  Company Number: IR-PFIZER INC-PV202200031258

PATIENT
  Age: 4 Year
  Sex: Male

DRUGS (15)
  1. CYTARABINE [Suspect]
     Active Substance: CYTARABINE
     Indication: Acute myeloid leukaemia
     Dosage: 200 MG/M2, CYCLIC (INDUCTION: PER DAY WITH CONTINUOUS IV INFUSION ON DAYS 1, 2, 3, 4)
     Route: 042
  2. CYTARABINE [Suspect]
     Active Substance: CYTARABINE
     Dosage: UNK UNK, CYCLIC (BASED ON AGE-ADJUSTED DOSE)
     Route: 037
  3. CYTARABINE [Suspect]
     Active Substance: CYTARABINE
     Dosage: 100 MG/M2, CYCLIC (2ND COURSE: PER DAY AS CONTINUOUS IV INFUSION ON DAYS 1, 2, 3, 4, 5)
     Route: 042
  4. CYTARABINE [Suspect]
     Active Substance: CYTARABINE
     Dosage: 2 G/M2 EVERY 12 HOURS AS A 2-HOUR IV INFUSION ON DAYS 1, 2, 3 (A TOTAL OF 6 DOSES; CONSOLIDATION)
     Route: 042
  5. IDARUBICIN HYDROCHLORIDE [Suspect]
     Active Substance: IDARUBICIN HYDROCHLORIDE
     Indication: Acute myeloid leukaemia
     Dosage: 12 MG/M2, CYCLIC (INDUCTION: AS A 4-HOUR IV INFUSION ON DAYS 2, 4, 6)
     Route: 042
  6. HYDROCORTISONE SODIUM SUCCINATE [Suspect]
     Active Substance: HYDROCORTISONE SODIUM SUCCINATE
     Indication: Acute myeloid leukaemia
     Dosage: UNK UNK, CYCLIC (BASED ON AGE-ADJUSTED DOSE)
     Route: 037
  7. THIOGUANINE ANHYDROUS [Suspect]
     Active Substance: THIOGUANINE ANHYDROUS
     Indication: Acute myeloid leukaemia
     Dosage: 100 MG/M2, CYCLIC (INDUCTION: EVERY 12 HOURS ON DAYS 1, 2, 3, 4)
     Route: 048
  8. ETOPOSIDE [Suspect]
     Active Substance: ETOPOSIDE
     Indication: Acute myeloid leukaemia
     Dosage: 100 MG/M2, CYCLIC (INDUCTION: PER DAY WITH CONTINUOUS IV INFUSION ON DAYS 1, 2, 3, 4)
     Route: 042
  9. ETOPOSIDE [Suspect]
     Active Substance: ETOPOSIDE
     Dosage: 100 MG/M2, CYCLIC (CONSOLIDATION: AS A 60-MINUTE IV INFUSION ON DAYS 2, 3, 4, 5)
     Route: 042
  10. METHOTREXATE [Suspect]
     Active Substance: METHOTREXATE
     Indication: Acute myeloid leukaemia
     Dosage: UNK UNK, CYCLIC (BASED ON AGE-ADJUSTED DOSE)
     Route: 037
  11. MITOXANTRONE [Suspect]
     Active Substance: MITOXANTRONE HYDROCHLORIDE
     Indication: Acute myeloid leukaemia
     Dosage: 10 MG/M2, CYCLIC (2ND COURSE: AS A 30-MINUTE IV INFUSION ON DAYS 1, 2, 3)
     Route: 042
  12. LASIX [Concomitant]
     Active Substance: FUROSEMIDE
     Indication: Pulmonary arterial pressure increased
  13. LASIX [Concomitant]
     Active Substance: FUROSEMIDE
     Indication: Pericardial effusion
  14. SILDENAFIL [Concomitant]
     Active Substance: SILDENAFIL
     Indication: Pulmonary arterial pressure increased
  15. SILDENAFIL [Concomitant]
     Active Substance: SILDENAFIL
     Indication: Pericardial effusion

REACTIONS (4)
  - Venoocclusive liver disease [Recovered/Resolved]
  - Thrombocytopenia [Recovered/Resolved]
  - Condition aggravated [Recovered/Resolved]
  - Pericardial effusion [Recovered/Resolved]
